FAERS Safety Report 5883694-3 (Version None)
Quarter: 2008Q3

REPORT INFORMATION
  Report Type: 
  Country: None (occurrence: None)
  Receive Date: 20080910
  Receipt Date: 20080827
  Transmission Date: 20090109
  Serious: Yes (Life-Threatening)
  Sender: FDA-Public Use
  Company Number: 004050

PATIENT
  Age: 70 Year
  Sex: Female

DRUGS (8)
  1. PLETAL [Suspect]
     Indication: CEREBRAL INFARCTION
     Dosage: 100 MG, BID
     Route: 048
     Dates: start: 20071008, end: 20080701
  2. PLAVIX [Concomitant]
  3. MUCOSTA (REBAMIPIDE) [Concomitant]
  4. MAGLAX (MAGNESIUM OXIDE) [Concomitant]
  5. OLMESARTAN MEDOXOMIL [Concomitant]
  6. ADALAT CC [Concomitant]
  7. CALBLOCK (AZELNIDIPINE) [Concomitant]
  8. ZANTAC 150 [Concomitant]

REACTIONS (8)
  - CEREBRAL INFARCTION [None]
  - DRUG ERUPTION [None]
  - DYSPNOEA [None]
  - GAIT DISTURBANCE [None]
  - HYPOXIA [None]
  - INTERSTITIAL LUNG DISEASE [None]
  - LYMPHOCYTE STIMULATION TEST POSITIVE [None]
  - RESPIRATORY FAILURE [None]
